FAERS Safety Report 10350932 (Version 4)
Quarter: 2014Q3

REPORT INFORMATION
  Report Type: Spontaneous
  Country: JP (occurrence: JP)
  Receive Date: 20140730
  Receipt Date: 20140902
  Transmission Date: 20150326
  Serious: Yes (Hospitalization, Other)
  Sender: FDA-Public Use
  Company Number: PHHY2014JP092255

PATIENT
  Age: 10 Year
  Sex: Male
  Weight: 28 kg

DRUGS (30)
  1. SULFAMETHOXAZOLE AND TRIMETHOPRIM [Suspect]
     Active Substance: SULFAMETHOXAZOLE\TRIMETHOPRIM
     Dosage: UNK UKN, UNK
     Route: 048
  2. UREPEARL [Concomitant]
     Active Substance: UREA
     Dosage: UNK UKN, UNK
  3. GLIVEC [Interacting]
     Active Substance: IMATINIB MESYLATE
     Dosage: 300 MG, DAILY
     Route: 048
     Dates: start: 20140701, end: 20140708
  4. ALOXI [Suspect]
     Active Substance: PALONOSETRON HYDROCHLORIDE
     Dosage: UNK UKN, UNK
     Route: 042
  5. NONTHRON [Concomitant]
     Dosage: UNK UKN, UNK
     Route: 042
  6. GLIVEC [Interacting]
     Active Substance: IMATINIB MESYLATE
     Dosage: 300 MG, DAILY
     Route: 048
     Dates: start: 20140715
  7. TOSUFLOXACIN TOSILATE [Suspect]
     Active Substance: TOSUFLOXACIN TOSYLATE
     Dosage: UNK UKN, UNK
     Route: 048
  8. PRODIF [Concomitant]
     Active Substance: FOSFLUCONAZOLE
     Dosage: UNK UKN, UNK
     Route: 042
  9. SOLDEM 3 [Concomitant]
     Dosage: UNK UKN, UNK
     Route: 042
  10. MAGMITT [Concomitant]
     Active Substance: MAGNESIUM OXIDE
     Dosage: UNK UKN, UNK
     Route: 048
  11. ISODINE [Concomitant]
     Active Substance: POVIDONE-IODINE
     Dosage: UNK UKN, UNK
  12. OMEPRAZOLE. [Interacting]
     Active Substance: OMEPRAZOLE
     Dosage: 20 MG, DAILY
     Route: 042
     Dates: start: 20140609, end: 20140630
  13. PREDONINE [Suspect]
     Active Substance: PREDNISOLONE\PREDNISOLONE ACETATE\PREDNISOLONE SODIUM SUCCINATE
     Dosage: UNK UKN, UNK
     Route: 042
  14. PROEMEND [Suspect]
     Active Substance: FOSAPREPITANT
     Dosage: 150 MG, DAILY
     Route: 042
     Dates: end: 20140627
  15. FLAGYL [Suspect]
     Active Substance: METRONIDAZOLE\METRONIDAZOLE HYDROCHLORIDE
     Dosage: UNK UKN, UNK
     Route: 048
  16. SOLDEM 1 [Concomitant]
     Dosage: UNK UKN, UNK
     Route: 042
  17. NEO-MINOPHAGEN C [Concomitant]
     Active Substance: AMMONIUM GLYCYRRHIZATE
     Route: 042
  18. DIFLUCAN [Interacting]
     Active Substance: FLUCONAZOLE
     Dosage: 100 MG, DAILY
     Route: 048
     Dates: start: 20140523, end: 20140630
  19. PRIMPERAN [Concomitant]
     Active Substance: METOCLOPRAMIDE HYDROCHLORIDE
     Dosage: UNK UKN, UNK
     Route: 042
  20. PREDNISOLONE. [Concomitant]
     Active Substance: PREDNISOLONE
     Dosage: UNK UKN, UNK
     Route: 048
  21. GLIVEC [Suspect]
     Active Substance: IMATINIB MESYLATE
     Indication: ACUTE LYMPHOCYTIC LEUKAEMIA
     Dosage: 400 MG, DAILY
     Route: 048
     Dates: start: 20140603, end: 20140618
  22. ONCOVIN [Interacting]
     Active Substance: VINCRISTINE SULFATE
     Indication: ACUTE LYMPHOCYTIC LEUKAEMIA
     Dosage: 1.7 MG, DAILY
     Route: 042
     Dates: start: 20140527, end: 20140617
  23. LEUNASE [Suspect]
     Active Substance: ASPARAGINASE
     Indication: ACUTE LYMPHOCYTIC LEUKAEMIA
     Dosage: 5700 IU, DAILY
     Route: 042
     Dates: start: 20140527, end: 20140620
  24. OMEPRAL [Concomitant]
     Active Substance: OMEPRAZOLE
     Dosage: UNK UKN, UNK
     Route: 042
  25. WHITE PETROLATUM [Concomitant]
     Active Substance: PETROLATUM
     Dosage: UNK UKN, UNK
  26. DAUNOMYCIN//DAUNORUBICIN HYDROCHLORIDE [Suspect]
     Active Substance: DAUNORUBICIN HYDROCHLORIDE
     Indication: ACUTE LYMPHOCYTIC LEUKAEMIA
     Dosage: 34 MG, DAILY
     Route: 042
     Dates: start: 20140527, end: 20140617
  27. GRANISETRON [Concomitant]
     Active Substance: GRANISETRON
     Dosage: UNK UKN, UNK
     Route: 042
  28. MEYLON [Concomitant]
     Active Substance: SODIUM BICARBONATE
     Dosage: UNK UKN, UNK
     Route: 042
  29. SALOBEL [Concomitant]
     Active Substance: ALLOPURINOL
     Dosage: UNK UKN, UNK
     Route: 048
  30. AZUNOL ST [Concomitant]
     Dosage: UNK UKN, UNK

REACTIONS (9)
  - Haematuria [Unknown]
  - Hydronephrosis [Recovered/Resolved]
  - Drug level increased [Recovered/Resolved]
  - Calculus ureteric [Recovered/Resolved]
  - Abdominal pain [Recovering/Resolving]
  - Dysuria [Unknown]
  - Pain [Recovered/Resolved]
  - Blood urine [Unknown]
  - Drug interaction [Unknown]

NARRATIVE: CASE EVENT DATE: 20140609
